FAERS Safety Report 8591088-5 (Version None)
Quarter: 2012Q3

REPORT INFORMATION
  Report Type: 
  Country: None (occurrence: None)
  Receive Date: 20120813
  Receipt Date: 20120808
  Transmission Date: 20120928
  Serious: Yes (Hospitalization, Other)
  Sender: FDA-Public Use
  Company Number: CA-JNJFOC-20100301308

PATIENT
  Sex: Male
  Weight: 86.18 kg

DRUGS (11)
  1. STELARA [Suspect]
     Route: 058
     Dates: start: 20090629
  2. STELARA [Suspect]
     Route: 058
     Dates: start: 20090701
  3. TEGRETOL [Concomitant]
     Indication: CONVULSION PROPHYLAXIS
  4. STELARA [Suspect]
     Route: 058
     Dates: start: 20091001
  5. BLOOD THINNERS [Concomitant]
  6. AGGRENOX [Concomitant]
     Indication: ANTICOAGULANT THERAPY
     Route: 048
  7. VARENICLINE [Concomitant]
  8. DOVONEX [Concomitant]
     Route: 061
  9. ANTI-SEIZURE MEDICATION [Concomitant]
  10. STELARA [Suspect]
     Indication: PSORIASIS
     Route: 058
     Dates: end: 20101028
  11. STELARA [Suspect]
     Route: 058
     Dates: start: 20100121

REACTIONS (6)
  - B-CELL LYMPHOMA [None]
  - COUGH [None]
  - DYSPHAGIA [None]
  - NASOPHARYNGITIS [None]
  - PYREXIA [None]
  - MUSCULOSKELETAL STIFFNESS [None]
